FAERS Safety Report 5602910-6 (Version None)
Quarter: 2008Q1

REPORT INFORMATION
  Report Type: 
  Country: None (occurrence: None)
  Receive Date: 20080125
  Receipt Date: 20080116
  Transmission Date: 20080703
  Serious: Yes (Hospitalization)
  Sender: FDA-Public Use
  Company Number: NL-BOEHRINGER INGELHEIM PHARMACEUTICALS, INC.-2008-NL-00042NL

PATIENT
  Sex: Female
  Weight: 71 kg

DRUGS (6)
  1. MICARDIS [Suspect]
     Dates: start: 20071222, end: 20071224
  2. SELOKEEN ZOC 200 MGA 190MG [Suspect]
     Indication: CARDIAC FAILURE
     Dates: start: 20071222, end: 20071224
  3. MADOPAR [Concomitant]
     Dates: start: 19900101
  4. REQUIP [Concomitant]
     Dates: start: 19900101
  5. FUROSEMIDUM [Concomitant]
     Dates: start: 19900101
  6. NON SPECIFIED DRUG [Concomitant]
     Indication: PARKINSON'S DISEASE
     Dates: start: 19900101

REACTIONS (4)
  - ABDOMINAL PAIN [None]
  - BACK PAIN [None]
  - HYPERKINESIA [None]
  - NAUSEA [None]
